FAERS Safety Report 4296794-9 (Version None)
Quarter: 2004Q1

REPORT INFORMATION
  Report Type: 
  Country: None (occurrence: None)
  Receive Date: 20040126
  Receipt Date: 20030905
  Transmission Date: 20041129
  Serious: No
  Sender: FDA-Public Use
  Company Number: USA030946413

PATIENT
  Age: 13 Year
  Sex: Male
  Weight: 45 kg

DRUGS (3)
  1. STRATTERA [Suspect]
     Indication: ATTENTION DEFICIT/HYPERACTIVITY DISORDER
     Dosage: 60 MG/DAY
     Dates: start: 20030801
  2. ALAVERT (LARATADIEN) [Concomitant]
  3. SINGULAIR (MONTELULKAST SODIUM) [Concomitant]

REACTIONS (1)
  - OESOPHAGEAL PAIN [None]
